FAERS Safety Report 15684354 (Version 2)
Quarter: 2019Q1

REPORT INFORMATION
  Report Type: Report from Study
  Country: JP (occurrence: JP)
  Receive Date: 20181204
  Receipt Date: 20190208
  Transmission Date: 20190417
  Serious: Yes (Hospitalization, Disabling)
  Sender: FDA-Public Use
  Company Number: JP-BEH-2018097285

PATIENT
  Age: 79 Year
  Sex: Female
  Weight: 52 kg

DRUGS (19)
  1. ELIQUIS [Concomitant]
     Active Substance: APIXABAN
     Dosage: 5 MG, QD
     Route: 048
     Dates: start: 20180827
  2. EDARAVONE [Concomitant]
     Active Substance: EDARAVONE
     Indication: CEREBRAL DISORDER
     Dosage: UNK
     Route: 065
     Dates: start: 20180814, end: 20180825
  3. TAZOPIP [Concomitant]
     Active Substance: PIPERACETAZINE\TAZOBACTAM
     Dosage: UNK
     Route: 065
     Dates: start: 20180825
  4. OZAGREL                            /01030902/ [Concomitant]
     Indication: VASOSPASM
     Dosage: UNK
     Route: 065
     Dates: start: 20180813, end: 20180827
  5. PITAVASTATIN CALCIUM [Concomitant]
     Active Substance: PITAVASTATIN CALCIUM
     Indication: VASOSPASM
     Dosage: UNK
     Route: 065
     Dates: start: 20180814, end: 20180826
  6. HUMULIN R [Concomitant]
     Active Substance: INSULIN HUMAN
     Indication: HYPERGLYCAEMIA
  7. ACETAMINOPHEN. [Concomitant]
     Active Substance: ACETAMINOPHEN
     Dosage: UNK
     Route: 065
     Dates: start: 20180819, end: 20180825
  8. WARFARIN                           /00014803/ [Concomitant]
     Active Substance: WARFARIN
     Indication: ISCHAEMIC HEART DISEASE PROPHYLAXIS
     Dosage: 3.5 MG, QD
     Route: 048
     Dates: end: 20180810
  9. HUMULIN R [Concomitant]
     Active Substance: INSULIN HUMAN
     Indication: DIABETES MELLITUS MANAGEMENT
     Dosage: UNK
     Route: 065
     Dates: start: 20180814
  10. ACETAMINOPHEN. [Concomitant]
     Active Substance: ACETAMINOPHEN
     Indication: PYREXIA
     Dosage: UNK
     Route: 065
     Dates: start: 20180818, end: 20180818
  11. E KEPPRA [Concomitant]
     Active Substance: LEVETIRACETAM
     Indication: VASOSPASM
     Dosage: UNK
     Route: 065
     Dates: start: 20180812, end: 20180814
  12. ERIL                               /01590002/ [Concomitant]
     Indication: VASOSPASM
     Dosage: UNK
     Route: 013
     Dates: start: 20180812, end: 20180831
  13. CEFTRIAXONE                        /00672202/ [Concomitant]
     Active Substance: CEFTRIAXONE
     Indication: PYREXIA
     Dosage: UNK
     Route: 065
     Dates: start: 20180817, end: 20180825
  14. BERIPLEX P/N [Suspect]
     Active Substance: COAGULATION FACTOR IX HUMAN\COAGULATION FACTOR VII HUMAN\COAGULATION FACTOR X HUMAN\PROTEIN C\PROTEIN S HUMAN\PROTHROMBIN
     Indication: HAEMORRHAGE
     Dosage: 1250 IU, SINGLE
     Route: 042
     Dates: start: 20180811
  15. KAYTWO N [Concomitant]
     Active Substance: MENATETRENONE
     Indication: PROCOAGULANT THERAPY
     Dosage: 10 MG, QD
     Route: 065
     Dates: start: 20180811, end: 20180811
  16. ELIQUIS [Concomitant]
     Active Substance: APIXABAN
     Indication: ISCHAEMIC HEART DISEASE PROPHYLAXIS
     Dosage: 5 MG, QD
     Route: 048
     Dates: start: 20180818, end: 20180819
  17. E KEPPRA [Concomitant]
     Active Substance: LEVETIRACETAM
     Indication: VASOSPASM
     Dosage: UNK
     Route: 048
     Dates: start: 20180814, end: 20180826
  18. NICARDIPINE HYDROCHLORIDE. [Concomitant]
     Active Substance: NICARDIPINE HYDROCHLORIDE
     Indication: BLOOD PRESSURE MANAGEMENT
     Dosage: UNK
     Route: 065
     Dates: start: 20180812, end: 20180818
  19. GLYCEREB [Concomitant]
     Active Substance: FRUCTOSE\GLYCERIN
     Indication: PROPHYLAXIS
     Dosage: UNK
     Route: 065
     Dates: start: 20180812, end: 20180830

REACTIONS (4)
  - Cerebral infarction [Recovered/Resolved with Sequelae]
  - Aphasia [Not Recovered/Not Resolved]
  - Hemiplegia [Not Recovered/Not Resolved]
  - Pyrexia [Recovered/Resolved]

NARRATIVE: CASE EVENT DATE: 20180817
